FAERS Safety Report 14101585 (Version 7)
Quarter: 2019Q1

REPORT INFORMATION
  Report Type: Spontaneous
  Country: US (occurrence: US)
  Receive Date: 20171018
  Receipt Date: 20190116
  Transmission Date: 20190417
  Serious: No
  Sender: FDA-Public Use
  Company Number: US-PFIZER INC-2017445488

PATIENT
  Age: 68 Year
  Sex: Female
  Weight: 75 kg

DRUGS (6)
  1. INSULIN [Concomitant]
     Active Substance: INSULIN NOS
     Dosage: UNK, DAILY
  2. LYRICA [Suspect]
     Active Substance: PREGABALIN
     Indication: MULTIPLE SCLEROSIS
     Dosage: 75 MG, 1X/DAY(IN THE MORNING)
     Route: 048
  3. WELLBUTRIN [Concomitant]
     Active Substance: BUPROPION HYDROCHLORIDE
     Indication: DEPRESSION
     Dosage: 1200 MG, 1X/DAY
     Route: 048
  4. LYRICA [Suspect]
     Active Substance: PREGABALIN
     Indication: TRIGEMINAL NEURALGIA
     Dosage: 225 MG, DAILY 75 MG IN THE MORNING AND 150 MG AT NIGHT)
     Route: 048
     Dates: end: 201707
  5. LYRICA [Suspect]
     Active Substance: PREGABALIN
     Dosage: 2 MG, UNK
  6. LYRICA [Suspect]
     Active Substance: PREGABALIN
     Dosage: 150 MG, 1X/DAY (AT NIGHT)
     Route: 048

REACTIONS (15)
  - Burning sensation [Not Recovered/Not Resolved]
  - Gait inability [Unknown]
  - Speech disorder [Unknown]
  - Bradyphrenia [Unknown]
  - Discomfort [Not Recovered/Not Resolved]
  - Sleep disorder [Unknown]
  - Fall [Unknown]
  - Product dispensing error [Unknown]
  - Pain [Unknown]
  - Blood glucose increased [Unknown]
  - Condition aggravated [Unknown]
  - Hypoaesthesia oral [Unknown]
  - Anxiety [Unknown]
  - Facial pain [Unknown]
  - Appetite disorder [Unknown]

NARRATIVE: CASE EVENT DATE: 201709
